FAERS Safety Report 18389533 (Version 4)
Quarter: 2025Q4

REPORT INFORMATION
  Report Type: Spontaneous
  Country: JP (occurrence: JP)
  Receive Date: 20201015
  Receipt Date: 20251225
  Transmission Date: 20260118
  Serious: Yes (Death)
  Sender: ELI LILLY AND COMPANY
  Company Number: JP-ELI_LILLY_AND_COMPANY-JP202010005255

PATIENT
  Age: 75 Year
  Sex: Male

DRUGS (13)
  1. ADCIRCA [Suspect]
     Active Substance: TADALAFIL
     Indication: Pulmonary arterial hypertension
     Dosage: 40 MG, DAILY
     Route: 048
     Dates: start: 20161125
  2. UPTRAVI [Concomitant]
     Active Substance: SELEXIPAG
     Indication: Pulmonary arterial hypertension
     Dosage: 0.4 MG, DAILY
     Route: 048
     Dates: start: 20191125, end: 20191205
  3. UPTRAVI [Concomitant]
     Active Substance: SELEXIPAG
     Dosage: 0.8 MG, DAILY
     Route: 048
     Dates: start: 20191206, end: 20200109
  4. UPTRAVI [Concomitant]
     Active Substance: SELEXIPAG
     Dosage: 1.2 MG, DAILY
     Route: 048
     Dates: start: 20200110, end: 20200206
  5. UPTRAVI [Concomitant]
     Active Substance: SELEXIPAG
     Dosage: 1.6 MG
     Route: 048
     Dates: start: 20200207, end: 20200312
  6. UPTRAVI [Concomitant]
     Active Substance: SELEXIPAG
     Dosage: 2 MG
     Route: 048
     Dates: start: 20200313, end: 20200409
  7. UPTRAVI [Concomitant]
     Active Substance: SELEXIPAG
     Dosage: 2.4 MG
     Route: 048
     Dates: start: 20200410
  8. OPSUMIT [Concomitant]
     Active Substance: MACITENTAN
     Indication: Pulmonary arterial hypertension
     Dosage: 10 MG, DAILY
     Route: 048
     Dates: start: 20161128
  9. BERAPROST SODIUM [Concomitant]
     Active Substance: BERAPROST SODIUM
     Indication: Pulmonary arterial hypertension
     Route: 048
  10. FEBUXOSTAT [Concomitant]
     Active Substance: FEBUXOSTAT
     Indication: Product used for unknown indication
     Route: 048
  11. WARFARIN POTASSIUM [Concomitant]
     Active Substance: WARFARIN POTASSIUM
     Indication: Product used for unknown indication
     Route: 048
  12. TORSEMIDE [Concomitant]
     Active Substance: TORSEMIDE
     Dosage: 4 MG, DAILY
     Route: 048
     Dates: start: 20200410
  13. OXYGEN [Concomitant]
     Active Substance: OXYGEN
     Dosage: 2 L
     Dates: start: 20200511

REACTIONS (1)
  - Pulmonary arterial hypertension [Fatal]

NARRATIVE: CASE EVENT DATE: 20200511
